FAERS Safety Report 14709136 (Version 2)
Quarter: 2018Q2

REPORT INFORMATION
  Report Type: Report from Study
  Country: US (occurrence: US)
  Receive Date: 20180403
  Receipt Date: 20180607
  Transmission Date: 20180711
  Serious: Yes (Other)
  Sender: FDA-Public Use
  Company Number: US-BAYER-2018-020716

PATIENT
  Age: 67 Year
  Sex: Female

DRUGS (3)
  1. NEXAVAR [Suspect]
     Active Substance: SORAFENIB
     Indication: DESMOID TUMOUR
     Dosage: 400 MG, QD
     Route: 048
     Dates: start: 20160111, end: 2016
  2. NEXAVAR [Suspect]
     Active Substance: SORAFENIB
     Indication: LUNG NEOPLASM MALIGNANT
     Dosage: 200 MG, QD
     Route: 048
     Dates: start: 201603
  3. NEXAVAR [Suspect]
     Active Substance: SORAFENIB
     Indication: SOFT TISSUE SARCOMA
     Dosage: 200 MG, QD
     Route: 048
     Dates: start: 20170522, end: 20180530

REACTIONS (19)
  - Fatigue [Recovered/Resolved]
  - Hair texture abnormal [Recovered/Resolved]
  - Desmoid tumour [Recovering/Resolving]
  - Hair disorder [None]
  - Hair texture abnormal [None]
  - Oropharyngeal pain [Recovered/Resolved]
  - Nausea [Recovered/Resolved]
  - Alopecia [Recovered/Resolved]
  - Headache [None]
  - Pain [Recovered/Resolved]
  - Malaise [None]
  - Off label use [None]
  - Ear disorder [None]
  - Product availability issue [None]
  - Respiratory tract infection [Recovered/Resolved]
  - Skin disorder [Recovered/Resolved]
  - Product use in unapproved indication [None]
  - Gastrointestinal disorder [Recovered/Resolved]
  - Drug dose omission [None]

NARRATIVE: CASE EVENT DATE: 201601
